FAERS Safety Report 19705206 (Version 2)
Quarter: 2022Q2

REPORT INFORMATION
  Report Type: Spontaneous
  Country: US (occurrence: US)
  Receive Date: 20210816
  Receipt Date: 20220420
  Transmission Date: 20220721
  Serious: No
  Sender: FDA-Public Use
  Company Number: US-PFIZER INC-2020407572

PATIENT
  Age: 50 Year
  Sex: Female

DRUGS (4)
  1. RETACRIT [Suspect]
     Active Substance: EPOETIN ALFA-EPBX
     Indication: Haemoglobin decreased
     Dosage: 10000, EVERY 15 DAYS
  2. RETACRIT [Suspect]
     Active Substance: EPOETIN ALFA-EPBX
     Indication: Nephrogenic anaemia
     Dosage: 10000 IU, WEEKLY, FOR  30 DAYS
     Route: 058
  3. RETACRIT [Suspect]
     Active Substance: EPOETIN ALFA-EPBX
     Dosage: 10X1ML
  4. RETACRIT [Suspect]
     Active Substance: EPOETIN ALFA-EPBX
     Dosage: EVERY 10 DAYS (1ST 10 TH 20TH) FOR 30 DAYS
     Route: 058

REACTIONS (6)
  - Off label use [Unknown]
  - Drug ineffective [Unknown]
  - Product dose omission issue [Unknown]
  - Memory impairment [Unknown]
  - Dizziness [Unknown]
  - Malaise [Unknown]
